FAERS Safety Report 12714940 (Version 2)
Quarter: 2016Q3

REPORT INFORMATION
  Report Type: Spontaneous
  Country: US (occurrence: US)
  Receive Date: 20160905
  Receipt Date: 20160912
  Transmission Date: 20161109
  Serious: Yes (Other)
  Sender: FDA-Public Use
  Company Number: US-AMGEN-USASP2016116462

PATIENT

DRUGS (7)
  1. XTANDI [Concomitant]
     Active Substance: ENZALUTAMIDE
     Dosage: UNK
  2. LUPRON [Concomitant]
     Active Substance: LEUPROLIDE ACETATE
     Dosage: UNK
  3. PREDNISONE. [Concomitant]
     Active Substance: PREDNISONE
     Dosage: UNK
  4. FENTANYL. [Concomitant]
     Active Substance: FENTANYL
     Dosage: UNK
  5. XGEVA [Suspect]
     Active Substance: DENOSUMAB
     Indication: PRODUCT USED FOR UNKNOWN INDICATION
     Dosage: UNK
     Route: 065
  6. ZYTIGA [Concomitant]
     Active Substance: ABIRATERONE ACETATE
     Dosage: UNK
  7. XOFIGO [Concomitant]
     Active Substance: RADIUM RA-223 DICHLORIDE
     Dosage: UNK

REACTIONS (19)
  - Pain [Unknown]
  - Stress [Unknown]
  - Weight increased [Unknown]
  - Dry mouth [Unknown]
  - Myalgia [Unknown]
  - Neoplasm [Unknown]
  - Intervertebral disc protrusion [Unknown]
  - Eye pain [Unknown]
  - Decreased appetite [Unknown]
  - Weight decreased [Unknown]
  - Neck pain [Unknown]
  - Bone pain [Unknown]
  - Nausea [Unknown]
  - Headache [Unknown]
  - Fatigue [Unknown]
  - Arthralgia [Unknown]
  - Bone disorder [Unknown]
  - Prostatic specific antigen abnormal [Unknown]
  - Asthenia [Unknown]
